FAERS Safety Report 4925887-5 (Version None)
Quarter: 2006Q1

REPORT INFORMATION
  Report Type: 
  Country: None (occurrence: None)
  Receive Date: 20060228
  Receipt Date: 20050411
  Transmission Date: 20060701
  Serious: No
  Sender: FDA-Public Use
  Company Number: US-GLAXOSMITHKLINE-A0553583A

PATIENT
  Sex: Female

DRUGS (4)
  1. LAMICTAL [Suspect]
     Indication: BIPOLAR DISORDER
     Dosage: 12.5MG PER DAY
     Route: 048
  2. ESKALITH [Concomitant]
  3. AMBIEN [Concomitant]
  4. RISPERDAL [Concomitant]

REACTIONS (1)
  - NIGHTMARE [None]
